FAERS Safety Report 7346994-6 (Version None)
Quarter: 2011Q1

REPORT INFORMATION
  Report Type: 
  Country: None (occurrence: None)
  Receive Date: 20110311
  Receipt Date: 20110228
  Transmission Date: 20110831
  Serious: Yes (Hospitalization)
  Sender: FDA-Public Use
  Company Number: PHHY2010JP86450

PATIENT
  Sex: Female
  Weight: 63 kg

DRUGS (8)
  1. TEGRETOL [Suspect]
     Indication: DEMENTIA
     Dosage: 50 MG, DAILY
     Route: 048
     Dates: start: 20101102, end: 20101115
  2. TEGRETOL [Suspect]
     Dosage: 100 MG, DAILY
     Route: 048
     Dates: start: 20101116, end: 20101206
  3. NICORANDIL [Concomitant]
     Indication: ANGINA PECTORIS
     Dosage: 15 MG, DAILY
     Route: 048
  4. NORVASC [Concomitant]
     Indication: HYPERTENSION
     Dosage: 5 MG, UNK
     Route: 048
  5. PARIET [Concomitant]
     Indication: PROPHYLAXIS AGAINST GASTROINTESTINAL ULCER
     Dosage: 10 MG, DAILY
     Route: 048
  6. BROTIZOLAM [Suspect]
     Indication: INSOMNIA
     Dosage: 0.25 MG, UNK
     Route: 048
  7. FUROSEMIDE [Concomitant]
     Indication: HYPERTENSION
     Dosage: 20 MG, DAILY
     Route: 048
  8. HERBESSOR R [Concomitant]
     Indication: HYPERTENSION
     Dosage: 100 MG, DAILY
     Route: 048

REACTIONS (10)
  - BLOOD CREATINE PHOSPHOKINASE INCREASED [None]
  - URINARY TRACT INFECTION [None]
  - INFLAMMATION [None]
  - MALAISE [None]
  - RASH [None]
  - PYREXIA [None]
  - MUSCULAR WEAKNESS [None]
  - DRUG ERUPTION [None]
  - HEPATIC FUNCTION ABNORMAL [None]
  - PYURIA [None]
